FAERS Safety Report 11375731 (Version 3)
Quarter: 2016Q1

REPORT INFORMATION
  Report Type: Spontaneous
  Country: US (occurrence: US)
  Receive Date: 20150813
  Receipt Date: 20160211
  Transmission Date: 20160525
  Serious: Yes (Life-Threatening, Hospitalization)
  Sender: FDA-Public Use
  Company Number: US-BAYER-2015-399790

PATIENT
  Age: 30 Year
  Sex: Female

DRUGS (1)
  1. MIRENA [Suspect]
     Active Substance: LEVONORGESTREL
     Indication: CONTRACEPTION
     Dosage: 20 MCG/24HR, CONT
     Route: 015
     Dates: start: 20130108, end: 20140428

REACTIONS (8)
  - Abdominal pain [None]
  - General physical health deterioration [None]
  - Injury [None]
  - Pain [None]
  - Uterine perforation [None]
  - Device difficult to use [None]
  - Menorrhagia [Recovered/Resolved]
  - Infection [None]

NARRATIVE: CASE EVENT DATE: 20140310
